FAERS Safety Report 15532992 (Version 1)
Quarter: 2018Q4

REPORT INFORMATION
  Report Type: Spontaneous
  Country: US (occurrence: US)
  Receive Date: 20181019
  Receipt Date: 20181019
  Transmission Date: 20190205
  Serious: No
  Sender: FDA-Public Use
  Company Number: US-ASTRAZENECA-2018SF23331

PATIENT
  Sex: Female

DRUGS (1)
  1. SYMBICORT [Suspect]
     Active Substance: BUDESONIDE\FORMOTEROL FUMARATE DIHYDRATE
     Route: 055

REACTIONS (8)
  - Rhinorrhoea [Unknown]
  - Dyspnoea [Unknown]
  - Wheezing [Unknown]
  - Malaise [Unknown]
  - Intentional device misuse [Unknown]
  - Drug ineffective [Unknown]
  - Productive cough [Unknown]
  - Hypersensitivity [Unknown]
